FAERS Safety Report 21131470 (Version 2)
Quarter: 2022Q4

REPORT INFORMATION
  Report Type: Spontaneous
  Country: US (occurrence: US)
  Receive Date: 20220726
  Receipt Date: 20221010
  Transmission Date: 20230112
  Serious: Yes (Other)
  Sender: FDA-Public Use
  Company Number: US-PFIZER INC-202200963719

PATIENT
  Age: 73 Year
  Sex: Female

DRUGS (3)
  1. DAPTOMYCIN [Suspect]
     Active Substance: DAPTOMYCIN
     Indication: Wound dehiscence
     Dosage: UNK (FOR 12 WEEKS)
  2. DAPTOMYCIN [Suspect]
     Active Substance: DAPTOMYCIN
     Indication: Wound infection
  3. CEFEPIME [Concomitant]
     Active Substance: CEFEPIME HYDROCHLORIDE
     Indication: Wound dehiscence
     Dosage: UNK

REACTIONS (2)
  - Eosinophilic pneumonia acute [Recovered/Resolved]
  - Acute respiratory failure [Recovered/Resolved]
